FAERS Safety Report 16250202 (Version 2)
Quarter: 2019Q4

REPORT INFORMATION
  Report Type: Spontaneous
  Country: US (occurrence: US)
  Receive Date: 20190429
  Receipt Date: 20191112
  Transmission Date: 20200122
  Serious: Yes (Hospitalization, Other)
  Sender: FDA-Public Use
  Company Number: US-JNJFOC-20190424415

PATIENT
  Age: 67 Year
  Sex: Female

DRUGS (2)
  1. XARELTO [Suspect]
     Active Substance: RIVAROXABAN
     Indication: OEDEMA PERIPHERAL
     Route: 048
     Dates: start: 20180201, end: 20180228
  2. XARELTO [Suspect]
     Active Substance: RIVAROXABAN
     Indication: PERIPHERAL SWELLING
     Route: 048
     Dates: end: 201803

REACTIONS (4)
  - Off label use [Unknown]
  - Uterine haemorrhage [Unknown]
  - Cystitis haemorrhagic [Unknown]
  - Product use in unapproved indication [Unknown]

NARRATIVE: CASE EVENT DATE: 20180201
